FAERS Safety Report 5314995-5 (Version None)
Quarter: 2007Q2

REPORT INFORMATION
  Report Type: 
  Country: None (occurrence: None)
  Receive Date: 20070426
  Receipt Date: 20070416
  Transmission Date: 20071010
  Serious: Yes (Hospitalization)
  Sender: FDA-Public Use
  Company Number: T200700429

PATIENT
  Age: 70 Year
  Sex: Male

DRUGS (3)
  1. SODIUM IODIDE I 131 [Suspect]
     Indication: ISOTOPE THERAPY TO THYROID
     Dosage: UNK, SINGLE, UNK
  2. LEVOTHYROXINE SODIUM [Concomitant]
  3. BETA BLOCKING AGENTS [Concomitant]

REACTIONS (22)
  - ABDOMINAL DISTENSION [None]
  - ASCITES [None]
  - ASTHENIA [None]
  - ATELECTASIS [None]
  - BLOOD ALKALINE PHOSPHATASE INCREASED [None]
  - BLOOD CREATININE INCREASED [None]
  - CONSTIPATION [None]
  - DYSPHONIA [None]
  - DYSPNOEA [None]
  - EARLY SATIETY [None]
  - EFFUSION [None]
  - EYE SWELLING [None]
  - GLYCOSYLATED HAEMOGLOBIN INCREASED [None]
  - HEPATOMEGALY [None]
  - HYPERTENSION [None]
  - HYPOREFLEXIA [None]
  - HYPOTHYROIDISM [None]
  - LEFT VENTRICULAR HYPERTROPHY [None]
  - PERIPHERAL COLDNESS [None]
  - SPEECH DISORDER [None]
  - TREATMENT NONCOMPLIANCE [None]
  - WEIGHT INCREASED [None]
